FAERS Safety Report 11465162 (Version 15)
Quarter: 2018Q1

REPORT INFORMATION
  Report Type: Report from Study
  Country: GB (occurrence: GB)
  Receive Date: 20150907
  Receipt Date: 20180209
  Transmission Date: 20180508
  Serious: Yes (Other)
  Sender: FDA-Public Use
  Company Number: GB-ROCHE-1609403

PATIENT
  Sex: Male

DRUGS (3)
  1. ESBRIET [Suspect]
     Active Substance: PIRFENIDONE
     Indication: IDIOPATHIC PULMONARY FIBROSIS
     Route: 048
     Dates: start: 20150114, end: 201506
  2. ESBRIET [Suspect]
     Active Substance: PIRFENIDONE
     Route: 048
     Dates: start: 2015
  3. GAVISCON (ALGINIC ACID) [Suspect]
     Active Substance: ALGINIC ACID
     Indication: PRODUCT USED FOR UNKNOWN INDICATION
     Route: 065

REACTIONS (24)
  - Productive cough [Unknown]
  - Sunburn [Recovered/Resolved]
  - Burning sensation [Not Recovered/Not Resolved]
  - Aspiration [Unknown]
  - Disturbance in attention [Unknown]
  - Vomiting [Unknown]
  - Nasopharyngitis [Unknown]
  - Muscle strain [Not Recovered/Not Resolved]
  - Gastrooesophageal reflux disease [Not Recovered/Not Resolved]
  - Rash [Recovered/Resolved]
  - Dizziness [Unknown]
  - Weight decreased [Not Recovered/Not Resolved]
  - Retching [Unknown]
  - Laryngeal inflammation [Unknown]
  - Constipation [Unknown]
  - Cough [Not Recovered/Not Resolved]
  - Pulse absent [Not Recovered/Not Resolved]
  - Flatulence [Unknown]
  - Dyspnoea [Unknown]
  - Sunburn [Unknown]
  - Cough [Recovered/Resolved]
  - Nasal congestion [Unknown]
  - Hiatus hernia [Unknown]
  - Rash macular [Recovered/Resolved]
